FAERS Safety Report 10296977 (Version 1)
Quarter: 2014Q3

REPORT INFORMATION
  Report Type: Report from Study
  Country: EG (occurrence: EG)
  Receive Date: 20140711
  Receipt Date: 20140711
  Transmission Date: 20150326
  Serious: Yes (Life-Threatening)
  Sender: FDA-Public Use
  Company Number: EG-ROCHE-1424559

PATIENT
  Age: 44 Year
  Sex: Female
  Weight: 65 kg

DRUGS (12)
  1. TRASTUZUMAB [Suspect]
     Active Substance: TRASTUZUMAB
     Dosage: MAINTAINANCE DOSE
     Route: 065
  2. TRASTUZUMAB [Suspect]
     Active Substance: TRASTUZUMAB
     Indication: BREAST CANCER
     Dosage: LOADING DOSE
     Route: 065
  3. EPIRUBICIN [Concomitant]
     Active Substance: EPIRUBICIN
     Route: 065
  4. XELODA [Concomitant]
     Active Substance: CAPECITABINE
     Dosage: 14 DAY
     Route: 048
     Dates: start: 20101023, end: 20101204
  5. DEXAMETHASONE. [Concomitant]
     Active Substance: DEXAMETHASONE
     Route: 042
     Dates: start: 20101023, end: 20101204
  6. GRANISETRON [Concomitant]
     Active Substance: GRANISETRON
     Route: 042
     Dates: start: 20101023, end: 20101204
  7. TRASTUZUMAB [Suspect]
     Active Substance: TRASTUZUMAB
     Dosage: ON 23/OCT/2011, 09/NOV/2011 AND 04/DEC/2011
     Route: 065
  8. DOMPERIDONE [Concomitant]
     Active Substance: DOMPERIDONE
  9. 5-FLUOROURACIL [Concomitant]
     Active Substance: FLUOROURACIL
  10. CYCLOPHOSPHAMIDE. [Concomitant]
     Active Substance: CYCLOPHOSPHAMIDE
  11. ALLOPURINOL. [Concomitant]
     Active Substance: ALLOPURINOL
     Route: 048
     Dates: start: 20101023, end: 20101204
  12. RANITIDINE [Concomitant]
     Active Substance: RANITIDINE\RANITIDINE HYDROCHLORIDE
     Route: 042
     Dates: start: 20101023, end: 20101204

REACTIONS (1)
  - Disease progression [Not Recovered/Not Resolved]

NARRATIVE: CASE EVENT DATE: 20101225
